FAERS Safety Report 6325927-5 (Version None)
Quarter: 2009Q3

REPORT INFORMATION
  Report Type: 
  Country: None (occurrence: None)
  Receive Date: 20090824
  Receipt Date: 20090819
  Transmission Date: 20100115
  Serious: Yes (Hospitalization, Other)
  Sender: FDA-Public Use
  Company Number: FR-BRISTOL-MYERS SQUIBB COMPANY-14748180

PATIENT
  Age: 85 Year
  Sex: Female

DRUGS (8)
  1. COUMADIN [Suspect]
     Dosage: 1 DF = 1 TAB
     Route: 048
     Dates: end: 20090203
  2. CORDARONE [Suspect]
     Dosage: CORDARONE 200 MG
     Route: 048
  3. ALDACTONE [Suspect]
     Dosage: 1 TAB ALDACTONE 25 MG
     Route: 048
  4. VASTAREL [Suspect]
     Dosage: 1 TAB VASTAREL 35 MG
     Route: 048
     Dates: end: 20090203
  5. LASIX [Suspect]
     Dosage: 1 TAB LASILIX 40 MG TABS
     Route: 048
  6. ATARAX [Suspect]
     Dosage: 1/2 TAB ATARAX 25 MG
     Route: 048
     Dates: end: 20090203
  7. CEFUROXIME [Concomitant]
     Indication: BRONCHITIS
     Dosage: 1 DF = 1 TAB
     Route: 048
     Dates: start: 20090109, end: 20090114
  8. CEFUROXIME [Concomitant]
     Indication: PNEUMONIA
     Dosage: 1 DF = 1 TAB
     Route: 048
     Dates: start: 20090109, end: 20090114

REACTIONS (4)
  - BRONCHITIS [None]
  - CEREBELLAR HAEMATOMA [None]
  - INTERNATIONAL NORMALISED RATIO INCREASED [None]
  - PNEUMONIA [None]
